FAERS Safety Report 20664327 (Version 4)
Quarter: 2022Q2

REPORT INFORMATION
  Report Type: Report from Study
  Country: PT (occurrence: PT)
  Receive Date: 20220401
  Receipt Date: 20220603
  Transmission Date: 20220721
  Serious: Yes (Other)
  Sender: FDA-Public Use
  Company Number: PT-ABBVIE-21K-130-4185331-00

PATIENT

DRUGS (26)
  1. OPICAPONE [Suspect]
     Active Substance: OPICAPONE
     Indication: Product used for unknown indication
     Dosage: BEFORE DUODOPA
     Route: 065
     Dates: start: 202111, end: 2022
  2. OPICAPONE [Suspect]
     Active Substance: OPICAPONE
     Dosage: UNK
     Route: 065
     Dates: start: 2022, end: 2022
  3. OPICAPONE [Suspect]
     Active Substance: OPICAPONE
     Dosage: UNK
     Route: 065
     Dates: start: 2022
  4. OPICAPONE [Suspect]
     Active Substance: OPICAPONE
     Dosage: UNK, AT NIGHT
     Route: 065
     Dates: start: 2022
  5. CARBIDOPA\LEVODOPA [Suspect]
     Active Substance: CARBIDOPA\LEVODOPA
     Indication: Parkinson^s disease
     Dosage: 20 MG PLUS 5 MG MORNING, 7.5 (PLUS 5 NJP), MAINTENANCE 2.8 CC/H, EXTRA 1 CC
     Route: 050
     Dates: start: 20211108
  6. CARBIDOPA\LEVODOPA [Suspect]
     Active Substance: CARBIDOPA\LEVODOPA
     Dosage: 20 MG PLUS 5 MG MORNING, 11.5 CC, MAINTANENCE 4.3 CC/H EXTRA 3.5 CC
     Route: 050
     Dates: start: 2021, end: 20211201
  7. CARBIDOPA\LEVODOPA [Suspect]
     Active Substance: CARBIDOPA\LEVODOPA
     Dosage: 20 MG PLUS 5 MG MORN 12CC, MAINT 4.6CC/H, EXTRA 4CC
     Route: 050
     Dates: start: 20211201, end: 20211204
  8. CARBIDOPA\LEVODOPA [Suspect]
     Active Substance: CARBIDOPA\LEVODOPA
     Dosage: 20 MG PLUS 5 MG MORN13.5CC, MAINT 4.8CC/H, EXTRA 4CC
     Route: 050
     Dates: start: 20211204, end: 20211207
  9. CARBIDOPA\LEVODOPA [Suspect]
     Active Substance: CARBIDOPA\LEVODOPA
     Dosage: 20 MG PLUS 5 MG MORNING 15CC, MAINT 5.2CC/H, EXTRA 4CC
     Route: 050
     Dates: start: 20211207, end: 20211211
  10. CARBIDOPA\LEVODOPA [Suspect]
     Active Substance: CARBIDOPA\LEVODOPA
     Dosage: 20 MG PLUS 5 MG MORN:16CC;MAINT:5.5CC/H;EXTRA:4CC
     Route: 050
     Dates: start: 20211211, end: 20211213
  11. CARBIDOPA\LEVODOPA [Suspect]
     Active Substance: CARBIDOPA\LEVODOPA
     Dosage: 20 MG PLUS 5 MG MORNING 18 CC, MAITENANCE 6 CC/H, EXTRA 4 CC
     Route: 050
     Dates: start: 20211213, end: 20220118
  12. CARBIDOPA\LEVODOPA [Suspect]
     Active Substance: CARBIDOPA\LEVODOPA
     Dosage: 20 MG PLUS 5 MG, MORNIN:18CC;MAINT:6.3CC/H;EXTRA:4CC;LL0 PATIENT COULD NOT SPECIFY
     Route: 050
     Dates: start: 20220118, end: 2022
  13. CARBIDOPA\LEVODOPA [Suspect]
     Active Substance: CARBIDOPA\LEVODOPA
     Dosage: 20 MG PLUS 5 MG, MORNING 18 CC, MAINTANENCE 6.5 CC/H EXTRA 4 CC, LL0 PATIENT COULD NOT SPECIFY
     Route: 050
     Dates: start: 2022
  14. CARBIDOPA\LEVODOPA [Suspect]
     Active Substance: CARBIDOPA\LEVODOPA
     Dosage: UNK, UNKNOWN
     Route: 065
     Dates: start: 20220323, end: 20220329
  15. CARBIDOPA\LEVODOPA [Suspect]
     Active Substance: CARBIDOPA\LEVODOPA
     Dosage: 20 MG + 5 MG (MORN:15CC;MAINT:4.3CC;EXTRA:2.5CC), UNKNOWN
     Route: 065
     Dates: start: 20220329, end: 20220329
  16. CARBIDOPA\LEVODOPA [Suspect]
     Active Substance: CARBIDOPA\LEVODOPA
     Dosage: 20 MG PLUS 5 MG, MORNING 18 CC, MAINTANENCE 6.5 CC/H EXTRA 4 CC, LL0 PATIENT COULD NOT SPECIFY
     Route: 050
     Dates: start: 2022, end: 2022
  17. ROPINIROLE [Concomitant]
     Active Substance: ROPINIROLE
     Indication: Product used for unknown indication
     Dosage: 4 (UNITS NOT PROVIDED) AT BREAKFAST
  18. RIVOTRIL [Concomitant]
     Active Substance: CLONAZEPAM
     Indication: Product used for unknown indication
     Dosage: 0.5 AT BEDTIME
  19. AMANTADINE HYDROCHLORIDE [Concomitant]
     Active Substance: AMANTADINE HYDROCHLORIDE
     Indication: Product used for unknown indication
     Dosage: 1 TABLET IN THE MORNING AND AT LUNCH
     Dates: start: 2022
  20. AMANTADINE HYDROCHLORIDE [Concomitant]
     Active Substance: AMANTADINE HYDROCHLORIDE
     Dosage: 3 DOSAGE FORM, DAILY
  21. AMANTADINE HYDROCHLORIDE [Concomitant]
     Active Substance: AMANTADINE HYDROCHLORIDE
     Dosage: 3 UNK, UNKNOWN
  22. SERTRALINE [Concomitant]
     Active Substance: SERTRALINE HYDROCHLORIDE
     Indication: Product used for unknown indication
     Dosage: 1 DOSAGE FORM, ONCE DAILY
  23. ENALAPRIL [Concomitant]
     Active Substance: ENALAPRIL
     Indication: Product used for unknown indication
     Dosage: DOSE OF 20 AT BREAKFAST
  24. ELIQUIS [Concomitant]
     Active Substance: APIXABAN
     Indication: Product used for unknown indication
     Dosage: 5 UNKNOWN UNITS (2 DOSAGE FORMS, ONCE DAILY)
  25. AMIODARONE [Concomitant]
     Active Substance: AMIODARONE
     Indication: Product used for unknown indication
     Dosage: 20 HALF IN FASTING
  26. Vildagliptin/metformin teva [Concomitant]
     Indication: Product used for unknown indication
     Dosage: 50/1000 MILLIGRAM

REACTIONS (22)
  - Dystonia [Recovered/Resolved]
  - Somnolence [Recovered/Resolved]
  - On and off phenomenon [Recovered/Resolved]
  - Tremor [Recovered/Resolved]
  - Vomiting [Unknown]
  - Freezing phenomenon [Recovering/Resolving]
  - Freezing phenomenon [Recovered/Resolved]
  - Vomiting [Recovered/Resolved]
  - Fall [Unknown]
  - Neck pain [Recovered/Resolved]
  - Mobility decreased [Recovered/Resolved]
  - Nausea [Recovered/Resolved]
  - Freezing phenomenon [Recovered/Resolved]
  - Vomiting [Recovered/Resolved]
  - Unevaluable event [Recovered/Resolved]
  - Dyskinesia [Recovering/Resolving]
  - Depressed mood [Recovered/Resolved]
  - Fall [Recovered/Resolved]
  - Peripheral swelling [Recovered/Resolved]
  - Cognitive disorder [Recovered/Resolved]
  - Feeling hot [Recovered/Resolved]
  - Erythema [Recovered/Resolved]

NARRATIVE: CASE EVENT DATE: 20211201
